FAERS Safety Report 11189302 (Version 1)
Quarter: 2015Q2

REPORT INFORMATION
  Report Type: Spontaneous
  Country: US (occurrence: None)
  Receive Date: 20150603
  Receipt Date: 20150603
  Transmission Date: 20150821
  Serious: No
  Sender: FDA-Public Use
  Company Number: 2015TASUS000721

PATIENT
  Age: 67 Year
  Sex: Female

DRUGS (12)
  1. CETIRIZINE [Concomitant]
     Active Substance: CETIRIZINE HYDROCHLORIDE
  2. ATORVASTATIN CALCIUM (ATORVASTATIN CALCIUM) [Concomitant]
     Active Substance: ATORVASTATIN CALCIUM
  3. BUPROPION HCL ER (BUPROPION HYDROCHLORIDE) [Concomitant]
  4. BUSPIRONE HCL (BUSPIRONE HYDROCHLORIDE) [Concomitant]
  5. CALCIUM 600 + D (CALCIUM CARBONATE, COLECALCIFEROL) [Concomitant]
  6. ACETAMINOPHEN (ACETAMINOPHEN) [Concomitant]
     Active Substance: ACETAMINOPHEN
  7. GENTEAL (HYPROMELLOSE) [Concomitant]
  8. GAVISCON (ALUMINIUM HYDROXIDE, MAGNESIUM CARBONATE) [Concomitant]
  9. HETLIOZ [Suspect]
     Active Substance: TASIMELTEON
     Indication: CIRCADIAN RHYTHM SLEEP DISORDER
     Dates: start: 20150129, end: 2015
  10. CARAFATE [Concomitant]
     Active Substance: SUCRALFATE
  11. FLUOXETINE HCL [Concomitant]
     Active Substance: FLUOXETINE HYDROCHLORIDE
  12. DOCUSATE SODUM (DOCUSATE SODIUM) [Concomitant]

REACTIONS (2)
  - Drug ineffective [None]
  - Incorrect drug administration duration [None]

NARRATIVE: CASE EVENT DATE: 20150129
